FAERS Safety Report 13798818 (Version 1)
Quarter: 2017Q3

REPORT INFORMATION
  Report Type: Spontaneous
  Country: US (occurrence: US)
  Receive Date: 20170727
  Receipt Date: 20170727
  Transmission Date: 20171127
  Serious: No
  Sender: FDA-Public Use
  Company Number: US-JNJFOC-20170712298

PATIENT
  Age: 8 Decade
  Sex: Female
  Weight: 65.77 kg

DRUGS (3)
  1. MENS ROGAINE EXTRA STRENGTH [Suspect]
     Active Substance: MINOXIDIL
     Route: 061
  2. MENS ROGAINE EXTRA STRENGTH [Suspect]
     Active Substance: MINOXIDIL
     Indication: ALOPECIA
     Dosage: SQUEEZES IT TO FILL IT UP
     Route: 061
     Dates: end: 20170712
  3. SYNTHROID [Concomitant]
     Active Substance: LEVOTHYROXINE SODIUM
     Indication: HYPOTHYROIDISM
     Route: 065

REACTIONS (7)
  - Dry skin [Recovering/Resolving]
  - Product use in unapproved indication [Unknown]
  - Off label use [Recovering/Resolving]
  - Pruritus [Recovering/Resolving]
  - Skin exfoliation [Recovering/Resolving]
  - Product use issue [Recovering/Resolving]
  - Wrong technique in product usage process [Recovering/Resolving]
